FAERS Safety Report 20437410 (Version 2)
Quarter: 2022Q1

REPORT INFORMATION
  Report Type: Report from Study
  Country: NO (occurrence: None)
  Receive Date: 20220207
  Receipt Date: 20220208
  Transmission Date: 20220424
  Serious: Yes (Other)
  Sender: FDA-Public Use
  Company Number: NO-ROCHE-2999096

PATIENT

DRUGS (2)
  1. VISMODEGIB [Suspect]
     Active Substance: VISMODEGIB
     Indication: Neoplasm malignant
     Route: 065
     Dates: start: 20210603, end: 20210630
  2. VISMODEGIB [Suspect]
     Active Substance: VISMODEGIB
     Route: 065
     Dates: start: 20210630, end: 20210805

REACTIONS (2)
  - Disease progression [Unknown]
  - Drug ineffective [Unknown]
